FAERS Safety Report 9120786 (Version 1)
Quarter: 2013Q1

REPORT INFORMATION
  Report Type: Spontaneous
  Country: US (occurrence: US)
  Receive Date: 20130226
  Receipt Date: 20130226
  Transmission Date: 20140127
  Serious: No
  Sender: FDA-Public Use
  Company Number: US-TARO-2012P1003676

PATIENT
  Age: 41 Year
  Sex: Male
  Weight: 83.92 kg

DRUGS (2)
  1. NYSTATIN [Suspect]
     Route: 061
     Dates: start: 20120124, end: 20120129
  2. SUPER COMPLEX DAILY [Concomitant]

REACTIONS (1)
  - Cheilitis [Recovered/Resolved]
